FAERS Safety Report 4452175-6 (Version None)
Quarter: 2004Q3

REPORT INFORMATION
  Report Type: 
  Country: None (occurrence: None)
  Receive Date: 20040916
  Receipt Date: 20040916
  Transmission Date: 20050211
  Serious: Yes (Life-Threatening, Other)
  Sender: FDA-Public Use
  Company Number: None

PATIENT
  Age: 80 Year
  Sex: Male
  Weight: 100 kg

DRUGS (14)
  1. COUMADIN [Suspect]
     Indication: ATRIAL FIBRILLATION
     Dosage: 5 MG PO QD
     Route: 048
     Dates: start: 20040914
  2. AVANDIA [Concomitant]
  3. METOPROLOL [Concomitant]
  4. DIGOXIN [Concomitant]
  5. LASIX [Concomitant]
  6. AMIODARONE [Concomitant]
  7. M.V.I. [Concomitant]
  8. CALCIUM [Concomitant]
  9. GLYBURIDE [Concomitant]
  10. METFORMIN HCL [Concomitant]
  11. K-DUR 10 [Concomitant]
  12. LIPITOR [Concomitant]
  13. DOXAZOSIN [Concomitant]
  14. ASPIRIN [Concomitant]

REACTIONS (1)
  - INTERNATIONAL NORMALISED RATIO INCREASED [None]
